FAERS Safety Report 5333854-5 (Version None)
Quarter: 2007Q2

REPORT INFORMATION
  Report Type: 
  Country: None (occurrence: None)
  Receive Date: 20070306
  Receipt Date: 20060817
  Transmission Date: 20071010
  Serious: Yes (Hospitalization)
  Sender: FDA-Public Use
  Company Number: A03200605226

PATIENT
  Age: 72 Year
  Sex: Female
  Weight: 66.66 kg

DRUGS (10)
  1. PLAVIX [Suspect]
     Indication: MYOCARDIAL INFARCTION
     Dosage: 75 MG QD - ORAL
     Route: 048
     Dates: start: 19970101, end: 20060807
  2. PLAVIX [Suspect]
     Indication: STENT PLACEMENT
     Dosage: 75 MG QD - ORAL
     Route: 048
     Dates: start: 19970101, end: 20060807
  3. IRON [Concomitant]
  4. SIMVASTATIN [Concomitant]
  5. METOPROLOL SUCCINATE [Concomitant]
  6. FENOFIBRATE [Concomitant]
  7. CLONIDINE [Concomitant]
  8. IRBESARTAN [Concomitant]
  9. LEVOTHYROXINE SODIUM [Concomitant]
  10. ACETYLSALICYLIC ACID SRT [Concomitant]

REACTIONS (7)
  - CONTUSION [None]
  - FAECES DISCOLOURED [None]
  - GASTRIC ULCER [None]
  - GASTROINTESTINAL HAEMORRHAGE [None]
  - HAEMATOCRIT DECREASED [None]
  - HAEMORRHAGIC DIATHESIS [None]
  - NAUSEA [None]
